FAERS Safety Report 6962130-X (Version None)
Quarter: 2010Q3

REPORT INFORMATION
  Report Type: 
  Country: None (occurrence: None)
  Receive Date: 20100902
  Receipt Date: 20100819
  Transmission Date: 20110219
  Serious: No
  Sender: FDA-Public Use
  Company Number: CA-JNJFOC-20100806713

PATIENT
  Sex: Male

DRUGS (16)
  1. DURAGESIC-100 [Suspect]
     Indication: PAIN
     Route: 062
  2. DURAGESIC-100 [Suspect]
     Indication: PRODUCT USED FOR UNKNOWN INDICATION
     Route: 062
  3. DIAZEPAM [Concomitant]
  4. ASPIRIN [Concomitant]
  5. DILTIAZEM [Concomitant]
  6. METFORMIN [Concomitant]
  7. METFORMIN [Concomitant]
  8. HUMULIN INSULIN [Concomitant]
  9. METOCLOPRAMIDE [Concomitant]
  10. METOPROLOL TARTRATE [Concomitant]
  11. PANTOPRAZOLE [Concomitant]
  12. ALTACE [Concomitant]
  13. CRESTOR [Concomitant]
  14. HYDROMORPHONE HCL [Concomitant]
  15. REPAGLINIDE [Concomitant]
  16. OLANZAPINE [Concomitant]

REACTIONS (2)
  - DRUG ADMINISTERED AT INAPPROPRIATE SITE [None]
  - HYPERAESTHESIA [None]
